FAERS Safety Report 9501493 (Version 2)
Quarter: 2013Q3

REPORT INFORMATION
  Report Type: Spontaneous
  Country: FR (occurrence: FR)
  Receive Date: 20130905
  Receipt Date: 20130905
  Transmission Date: 20140515
  Serious: Yes (Other)
  Sender: FDA-Public Use
  Company Number: FR-ABBOTT-13P-056-1097018-00

PATIENT
  Age: 31 Year
  Sex: Female
  Weight: 55 kg

DRUGS (4)
  1. HUMIRA [Suspect]
     Indication: CROHN^S DISEASE
     Dosage: DAY 1
     Dates: start: 20120821, end: 20120821
  2. HUMIRA [Suspect]
     Indication: COLITIS ULCERATIVE
     Dosage: DAY 15
  3. HUMIRA [Suspect]
     Indication: AUTOIMMUNE HEPATITIS
     Dates: end: 20130102
  4. HUMIRA [Suspect]
     Indication: AUTOIMMUNE PANCREATITIS

REACTIONS (11)
  - Depression [Recovered/Resolved]
  - Insomnia [Recovered/Resolved]
  - Crying [Recovered/Resolved]
  - Asthenia [Recovered/Resolved]
  - Back pain [Recovered/Resolved]
  - Dizziness [Recovered/Resolved]
  - Dizziness [Recovered/Resolved]
  - Nausea [Recovered/Resolved]
  - Off label use [Unknown]
  - Autoimmune hepatitis [Unknown]
  - Pancreatitis [Unknown]
